FAERS Safety Report 10059765 (Version 2)
Quarter: 2014Q2

REPORT INFORMATION
  Report Type: Spontaneous
  Country: US (occurrence: None)
  Receive Date: 20140402
  Receipt Date: 20140409
  Transmission Date: 20141212
  Serious: Yes (Other)
  Sender: FDA-Public Use
  Company Number: AUR-APL-2014-03810

PATIENT
  Age: 10 Year
  Sex: Male

DRUGS (2)
  1. SEMISODIUM VALPROATE [Suspect]
     Indication: PRODUCT USED FOR UNKNOWN INDICATION
  2. BEVACIZUMAB (BEVACIZUMAB) [Concomitant]

REACTIONS (2)
  - Rash [None]
  - Lip swelling [None]
